FAERS Safety Report 7677406-0 (Version None)
Quarter: 2011Q3

REPORT INFORMATION
  Report Type: 
  Country: None (occurrence: None)
  Receive Date: 20110811
  Receipt Date: 20100625
  Transmission Date: 20111222
  Serious: Yes (Other)
  Sender: FDA-Public Use
  Company Number: US-BRISTOL-MYERS SQUIBB COMPANY-15166820

PATIENT
  Age: 29 Year
  Sex: Male

DRUGS (3)
  1. TRUVADA [Suspect]
     Dates: start: 20091224
  2. REYATAZ [Suspect]
     Dates: start: 20091224
  3. NORVIR [Suspect]
     Dates: start: 20091224

REACTIONS (1)
  - BLOOD BILIRUBIN INCREASED [None]
